FAERS Safety Report 10860724 (Version 1)
Quarter: 2015Q1

REPORT INFORMATION
  Report Type: Spontaneous
  Country: US (occurrence: US)
  Receive Date: 20150224
  Receipt Date: 20150224
  Transmission Date: 20150721
  Serious: No
  Sender: FDA-Public Use
  Company Number: US-ASTRAZENECA-2015SE16940

PATIENT
  Sex: Female

DRUGS (14)
  1. ACTOS [Suspect]
     Active Substance: PIOGLITAZONE HYDROCHLORIDE
  2. CIPRO [Suspect]
     Active Substance: CIPROFLOXACIN HYDROCHLORIDE
  3. TRAMADOL [Suspect]
     Active Substance: TRAMADOL
  4. HYDROCHLOROTHIAZIDE. [Suspect]
     Active Substance: HYDROCHLOROTHIAZIDE
  5. ALEVE [Suspect]
     Active Substance: NAPROXEN SODIUM
  6. MACROBID [Suspect]
     Active Substance: NITROFURANTOIN\NITROFURANTOIN MONOHYDRATE
  7. SERTRALINE HCL [Suspect]
     Active Substance: SERTRALINE HYDROCHLORIDE
  8. METOCLOPRAMIDE HCL [Suspect]
     Active Substance: METOCLOPRAMIDE HYDROCHLORIDE
  9. CEFUROXIME. [Suspect]
     Active Substance: CEFUROXIME
     Dosage: CEFUROXIME
  10. CEFUROXIME. [Suspect]
     Active Substance: CEFUROXIME
     Dosage: CEFUROXIME AXETIL
  11. AVELOX [Suspect]
     Active Substance: MOXIFLOXACIN HYDROCHLORIDE
  12. NEXIUM [Suspect]
     Active Substance: ESOMEPRAZOLE MAGNESIUM
  13. CEPHALEXIN. [Suspect]
     Active Substance: CEPHALEXIN
  14. AMOXICILLIN. [Suspect]
     Active Substance: AMOXICILLIN

REACTIONS (1)
  - Drug hypersensitivity [Unknown]
